FAERS Safety Report 4975129-X (Version None)
Quarter: 2006Q2

REPORT INFORMATION
  Report Type: 
  Country: None (occurrence: None)
  Receive Date: 20060411
  Receipt Date: 20060323
  Transmission Date: 20061013
  Serious: Yes (Hospitalization, Other)
  Sender: FDA-Public Use
  Company Number: GB200603001996

PATIENT
  Age: 80 Year
  Sex: Female

DRUGS (13)
  1. FORTEO [Suspect]
     Indication: OSTEOPOROSIS
     Dosage: 20 UG, DAILY (1/D), SUBCUTANEOUS
     Route: 058
     Dates: start: 20060221
  2. FORTEO [Concomitant]
  3. ATENOLOL [Concomitant]
  4. ANGITIL - SLOW RELEASE (DILTIAZEM HYDROCHLORIDE) [Concomitant]
  5. ISOSORBIDE (ISOSORBIDE) [Concomitant]
  6. PANTOPRAZOLE SODIUM [Concomitant]
  7. AMLODIPINE [Concomitant]
  8. NOVORAPID /DEN/ (INSULIN ASPART) [Concomitant]
  9. LANTUS [Concomitant]
  10. TRAMADOL HCL [Concomitant]
  11. ZIMOVANE (ZOPICLONE) [Concomitant]
  12. RANITIDINE [Concomitant]
  13. FUROSEMIDE [Concomitant]

REACTIONS (3)
  - ANGINA PECTORIS [None]
  - CONDITION AGGRAVATED [None]
  - MYOCARDIAL INFARCTION [None]
